FAERS Safety Report 19266357 (Version 2)
Quarter: 2021Q2

REPORT INFORMATION
  Report Type: Spontaneous
  Country: CA (occurrence: CA)
  Receive Date: 20210518
  Receipt Date: 20210520
  Transmission Date: 20210717
  Serious: Yes (Hospitalization, Other)
  Sender: FDA-Public Use
  Company Number: CA-JNJFOC-20210526370

PATIENT
  Sex: Female

DRUGS (3)
  1. VERZENIO [Concomitant]
     Active Substance: ABEMACICLIB
     Route: 048
  2. VERZENIO [Concomitant]
     Active Substance: ABEMACICLIB
     Route: 048
  3. IMODIUM [Suspect]
     Active Substance: LOPERAMIDE HYDROCHLORIDE
     Indication: DIARRHOEA
     Route: 065

REACTIONS (21)
  - Nasal dryness [Unknown]
  - Drug ineffective [Unknown]
  - Fatigue [Unknown]
  - Nausea [Unknown]
  - Malignant neoplasm progression [Unknown]
  - Renal impairment [Unknown]
  - Decreased appetite [Unknown]
  - Illness [Unknown]
  - Rash pruritic [Unknown]
  - Pruritus [Unknown]
  - Weight decreased [Unknown]
  - Headache [Unknown]
  - Blood sodium decreased [Unknown]
  - Withdrawal syndrome [Unknown]
  - Vomiting [Unknown]
  - Epistaxis [Unknown]
  - Muscular weakness [Unknown]
  - Stomatitis [Unknown]
  - Rash vesicular [Unknown]
  - Abdominal pain upper [Unknown]
  - Diarrhoea [Unknown]
